FAERS Safety Report 7820058-7 (Version None)
Quarter: 2011Q4

REPORT INFORMATION
  Report Type: 
  Country: None (occurrence: None)
  Receive Date: 20111013
  Receipt Date: 20110929
  Transmission Date: 20120403
  Serious: Yes (Disabling, Other)
  Sender: FDA-Public Use
  Company Number: 2011-3727

PATIENT
  Age: 20 Year
  Sex: Female

DRUGS (4)
  1. DYSPORT [Suspect]
     Indication: MUSCLE SPASTICITY
     Dosage: 600 UNITS (600 UNITS, SINGLE CYCLE), INTRAMUSCULAR
     Route: 030
     Dates: start: 20110901, end: 20110901
  2. LAMOTRIGINE [Concomitant]
  3. LEVETIRACETAM [Concomitant]
  4. MIDAZOLAM HCL [Concomitant]

REACTIONS (2)
  - CONVULSION [None]
  - CONDITION AGGRAVATED [None]
